FAERS Safety Report 14262335 (Version 1)
Quarter: 2017Q4

REPORT INFORMATION
  Report Type: Spontaneous
  Country: SE (occurrence: SE)
  Receive Date: 20171208
  Receipt Date: 20171208
  Transmission Date: 20180321
  Serious: No
  Sender: FDA-Public Use
  Company Number: SE-KYOWAKIRIN-2017BKK000845

PATIENT

DRUGS (2)
  1. SANCUSO [Suspect]
     Active Substance: GRANISETRON
     Dosage: DAY 1-7 EVERY 14 DAYS
     Route: 062
     Dates: start: 20160718, end: 20160725
  2. SANCUSO [Suspect]
     Active Substance: GRANISETRON
     Indication: PROPHYLAXIS OF NAUSEA AND VOMITING
     Dosage: DAY 1-7 EVERY 14 DAYS
     Route: 062
     Dates: start: 20160229, end: 20160501

REACTIONS (4)
  - Drug administered at inappropriate site [Recovered/Resolved]
  - Application site swelling [Unknown]
  - Application site erythema [Unknown]
  - Application site pain [Unknown]

NARRATIVE: CASE EVENT DATE: 2016
